FAERS Safety Report 11709713 (Version 2)
Quarter: 2015Q4

REPORT INFORMATION
  Report Type: Spontaneous
  Country: US (occurrence: US)
  Receive Date: 20151104
  Receipt Date: 20151110
  Transmission Date: 20160304
  Serious: No
  Sender: FDA-Public Use
  Company Number: US-ELI_LILLY_AND_COMPANY-US201107001738

PATIENT
  Age: 68 Year
  Sex: Female

DRUGS (4)
  1. FORTEO [Suspect]
     Active Substance: TERIPARATIDE
     Dosage: 20 UG, QD
  2. FORTEO [Suspect]
     Active Substance: TERIPARATIDE
     Indication: OSTEOPOROSIS
     Dosage: 20 UG, QD
  3. FORTEO [Suspect]
     Active Substance: TERIPARATIDE
     Dosage: 20 UG, QD
  4. VITAMIN D [Concomitant]
     Active Substance: CHOLECALCIFEROL

REACTIONS (15)
  - Muscle spasms [Unknown]
  - Road traffic accident [Unknown]
  - Shoulder operation [Recovering/Resolving]
  - Hypoacusis [Unknown]
  - Depressed mood [Unknown]
  - Fatigue [Unknown]
  - Swelling [Unknown]
  - Sleep disorder [Unknown]
  - Vitamin D decreased [Unknown]
  - Post-traumatic neck syndrome [Unknown]
  - Joint injury [Unknown]
  - Limb injury [Unknown]
  - Mobility decreased [Not Recovered/Not Resolved]
  - Contusion [Unknown]
  - Pain [Unknown]

NARRATIVE: CASE EVENT DATE: 20110506
